FAERS Safety Report 22762994 (Version 5)
Quarter: 2024Q1

REPORT INFORMATION
  Report Type: Report from Study
  Country: CO (occurrence: CO)
  Receive Date: 20230729
  Receipt Date: 20240312
  Transmission Date: 20240410
  Serious: Yes (Other)
  Sender: FDA-Public Use
  Company Number: CO-AMGEN-COLSL2023120352

PATIENT
  Age: 71 Year
  Sex: Female

DRUGS (2)
  1. VECTIBIX [Suspect]
     Active Substance: PANITUMUMAB
     Indication: Colorectal cancer metastatic
     Dosage: 340 MILLIGRAM, Q2WK
     Route: 065
     Dates: start: 20230627, end: 20231107
  2. POLYVINYL ALCOHOL [Concomitant]
     Active Substance: POLYVINYL ALCOHOL
     Dosage: 15 MILLILITER, TID APPLY 1 DROP IN EACH EYE EVERY 08 HOURS
     Route: 065

REACTIONS (2)
  - Toxic skin eruption [Not Recovered/Not Resolved]
  - Skin lesion [Recovering/Resolving]

NARRATIVE: CASE EVENT DATE: 20230101
